FAERS Safety Report 4337715-X (Version None)
Quarter: 2004Q2

REPORT INFORMATION
  Report Type: 
  Country: None (occurrence: None)
  Receive Date: 20040413
  Receipt Date: 20040206
  Transmission Date: 20050107
  Serious: Yes (Hospitalization)
  Sender: FDA-Public Use
  Company Number: FR-ROCHE-358747

PATIENT
  Age: 40 Year
  Sex: Female
  Weight: 70 kg

DRUGS (3)
  1. PEGASYS [Suspect]
     Route: 058
     Dates: start: 20031202
  2. REBETOL [Suspect]
     Dosage: STARTING DOSE 5 CAPSULES PER DAY, LATER DECREASED (UNSPECIFIED).
     Route: 048
     Dates: start: 20031202
  3. ACETAMINOPHEN [Concomitant]

REACTIONS (4)
  - FIXED ERUPTION [None]
  - PRURITUS [None]
  - RASH ERYTHEMATOUS [None]
  - RASH PAPULAR [None]
